FAERS Safety Report 10187525 (Version 1)
Quarter: 2014Q2

REPORT INFORMATION
  Report Type: Spontaneous
  Country: US (occurrence: US)
  Receive Date: 20140522
  Receipt Date: 20140522
  Transmission Date: 20141212
  Serious: No
  Sender: FDA-Public Use
  Company Number: US-SANOFI-AVENTIS-2013SA080979

PATIENT
  Age: 60 Year
  Sex: Male

DRUGS (2)
  1. SOLOSTAR [Suspect]
     Indication: DIABETES MELLITUS
     Dosage: START DATE -- 6 WEEKS AGO?DOSE -- 12 -20 UNITS
     Dates: start: 201306
  2. LANTUS SOLOSTAR [Suspect]
     Indication: DIABETES MELLITUS
     Dosage: START DATE -- 6 WEEKS AGO?DOSE -- 12- 20 UNITS DOSE:12 UNIT(S)
     Route: 051
     Dates: start: 201306

REACTIONS (1)
  - Injury associated with device [Unknown]
